FAERS Safety Report 21750020 (Version 5)
Quarter: 2023Q1

REPORT INFORMATION
  Report Type: Report from Study
  Country: PL (occurrence: None)
  Receive Date: 20221219
  Receipt Date: 20230217
  Transmission Date: 20230418
  Serious: Yes (Life-Threatening, Hospitalization)
  Sender: FDA-Public Use
  Company Number: PL-ROCHE-3244208

PATIENT
  Age: 61 Year
  Sex: Male
  Weight: 82 kg

DRUGS (36)
  1. OCRELIZUMAB [Suspect]
     Active Substance: OCRELIZUMAB
     Indication: Relapsing-remitting multiple sclerosis
     Dosage: SHE RECEIVED SUBSEQUENT DOSE ON 29/JAN/2013 (BASELINE WEEK 2)
     Route: 042
     Dates: start: 20130115, end: 20130115
  2. OCRELIZUMAB [Suspect]
     Active Substance: OCRELIZUMAB
     Dosage: SHE RECEIVED SUBSEQUENT DOSE ON 17/DEC/2013, 03/JUN/2014
     Route: 042
     Dates: start: 20130628, end: 20130628
  3. PLACEBO [Suspect]
     Active Substance: UNSPECIFIED INGREDIENT
     Indication: Relapsing-remitting multiple sclerosis
     Route: 058
     Dates: start: 20130115, end: 20130115
  4. PLACEBO [Suspect]
     Active Substance: UNSPECIFIED INGREDIENT
     Route: 058
     Dates: start: 20141118, end: 20141129
  5. OCRELIZUMAB [Suspect]
     Active Substance: OCRELIZUMAB
     Indication: Relapsing-remitting multiple sclerosis
     Dosage: TREATMENT DATES: 15/DEC/2014
     Route: 042
     Dates: start: 20141201, end: 20141201
  6. OCRELIZUMAB [Suspect]
     Active Substance: OCRELIZUMAB
     Dosage: TREATMENT DATE: 03/NOV/2015, 25/APR/2016, 30/SEP/2016, 21/MAR/2017, 05/SEP/2017, 21/FEB/2018, 24/AUG
     Route: 042
     Dates: start: 20150522, end: 20150522
  7. CETIRIZINE HYDROCHLORIDE [Concomitant]
     Active Substance: CETIRIZINE HYDROCHLORIDE
     Dosage: TREATMENT DATES: 29/JAN/2013, 28/JUN/2013, 17/DEC/2013, 03/JUN/2014, 01/DEC/2014, 15/DEC/2014, 22/MA
     Dates: start: 20130115
  8. ACETAMINOPHEN [Concomitant]
     Active Substance: ACETAMINOPHEN
     Dosage: TREATMENT DATES: 29/JAN/2013, 28/JUN/2013, 17/DEC/2013, 03/JUN/2014, 01/DEC/2014, 15/DEC/2014, 22/MA
     Dates: start: 20130115
  9. METHYLPREDNISOLONE [Concomitant]
     Active Substance: METHYLPREDNISOLONE
     Dosage: TREATMENT DATES: 29/JAN/2013, 28/JUN/2013, 17/DEC/2013, 03/JUN/2014, 01/DEC/2014, 15/DEC/2014, 22/MA
     Dates: start: 20130115
  10. NEOSINE FORTE [Concomitant]
     Dates: start: 20221004, end: 20221004
  11. ASPIRIN [Concomitant]
     Active Substance: ASPIRIN
     Dates: start: 20221004, end: 20221004
  12. ENOXAPARIN SODIUM [Concomitant]
     Active Substance: ENOXAPARIN SODIUM
     Dates: start: 20221209, end: 20230101
  13. CITAL (POLAND) [Concomitant]
     Indication: Depression
     Dates: start: 20150807, end: 20190526
  14. CITAL (POLAND) [Concomitant]
     Dates: start: 20190527
  15. VENLAFAXINE HYDROCHLORIDE [Concomitant]
     Active Substance: VENLAFAXINE HYDROCHLORIDE
     Indication: Depression
     Dates: start: 20130520, end: 20130520
  16. TEGRETOL [Concomitant]
     Active Substance: CARBAMAZEPINE
     Indication: Depression
     Dosage: 400 MG
     Dates: start: 20130520, end: 20130520
  17. TEGRETOL [Concomitant]
     Active Substance: CARBAMAZEPINE
     Dates: start: 20130621, end: 20141104
  18. TEGRETOL [Concomitant]
     Active Substance: CARBAMAZEPINE
     Dates: start: 20150807
  19. TIANEPTINE SODIUM [Concomitant]
     Active Substance: TIANEPTINE SODIUM
     Indication: Depression
     Dates: start: 20130520, end: 20130520
  20. RELANIUM [Concomitant]
     Indication: Depression
     Dates: start: 20131105, end: 20131120
  21. VENLAFAXINE HYDROCHLORIDE [Concomitant]
     Active Substance: VENLAFAXINE HYDROCHLORIDE
     Indication: Depression
     Dates: start: 20130520, end: 20130520
  22. VENLAFAXINE HYDROCHLORIDE [Concomitant]
     Active Substance: VENLAFAXINE HYDROCHLORIDE
     Dates: start: 20130621, end: 20130916
  23. MELPERONE [Concomitant]
     Active Substance: MELPERONE
     Indication: Depression
     Dates: start: 20131201, end: 20140804
  24. CLOBEDERM [Concomitant]
     Indication: Eczema
     Dates: start: 20191120, end: 20191127
  25. MOMETASONE FUROATE [Concomitant]
     Active Substance: MOMETASONE FUROATE
     Indication: Eczema
     Dates: start: 20191120, end: 20191127
  26. SOLU-MEDROL [Concomitant]
     Active Substance: METHYLPREDNISOLONE SODIUM SUCCINATE
     Dates: start: 20130701, end: 20130703
  27. SOLU-MEDROL [Concomitant]
     Active Substance: METHYLPREDNISOLONE SODIUM SUCCINATE
     Dates: start: 20131227, end: 20131229
  28. SOLU-MEDROL [Concomitant]
     Active Substance: METHYLPREDNISOLONE SODIUM SUCCINATE
     Dates: start: 20190719, end: 20190723
  29. TOLPERIS [Concomitant]
     Dates: start: 20130621, end: 20131130
  30. OMEPRAZOLE [Concomitant]
     Active Substance: OMEPRAZOLE
     Dates: start: 20131227, end: 20131229
  31. OMEPRAZOLE [Concomitant]
     Active Substance: OMEPRAZOLE
     Dates: start: 20130701, end: 20130703
  32. OMEPRAZOLE [Concomitant]
     Active Substance: OMEPRAZOLE
     Dates: start: 20150224, end: 20150226
  33. PANTOPRAZOLE [Concomitant]
     Active Substance: PANTOPRAZOLE
     Dates: start: 20190719, end: 20190723
  34. IBUPROFEN [Concomitant]
     Active Substance: IBUPROFEN
     Dates: start: 20140805, end: 20141031
  35. CIPROFLOXACIN [Concomitant]
     Active Substance: CIPROFLOXACIN
     Indication: Urinary tract infection
     Dates: start: 20201113, end: 20201119
  36. CHLORPROTHIXENE HYDROCHLORIDE [Concomitant]
     Active Substance: CHLORPROTHIXENE HYDROCHLORIDE
     Indication: Depression

REACTIONS (1)
  - Appendicitis [Recovered/Resolved with Sequelae]

NARRATIVE: CASE EVENT DATE: 20221206
